FAERS Safety Report 11235674 (Version 1)
Quarter: 2015Q3

REPORT INFORMATION
  Report Type: Other
  Country: CN (occurrence: CN)
  Receive Date: 20150702
  Receipt Date: 20150702
  Transmission Date: 20151125
  Serious: Yes (Other)
  Sender: FDA-Public Use
  Company Number: CN-GUERBET LLC-1040323

PATIENT
  Age: 56 Year
  Sex: Male

DRUGS (4)
  1. ULTRAVIST [Interacting]
     Active Substance: IOPROMIDE
  2. LIPIODOL [Suspect]
     Active Substance: ETHIODIZED OIL
     Indication: TRANSCATHETER ARTERIAL CHEMOEMBOLISATION
  3. CISPLATIN. [Concomitant]
     Active Substance: CISPLATIN
  4. FLOXURIDINE. [Concomitant]
     Active Substance: FLOXURIDINE

REACTIONS (1)
  - Thrombocytopenia [Recovered/Resolved]
